FAERS Safety Report 20499099 (Version 1)
Quarter: 2022Q1

REPORT INFORMATION
  Report Type: Spontaneous
  Country: US (occurrence: US)
  Receive Date: 20220222
  Receipt Date: 20220222
  Transmission Date: 20220424
  Serious: No
  Sender: FDA-Public Use
  Company Number: US-SA-SAC20220217000184

PATIENT
  Age: 35 Year
  Sex: Male

DRUGS (1)
  1. DUPIXENT [Suspect]
     Active Substance: DUPILUMAB
     Dosage: FREQUENCY: OTHER
     Route: 058
     Dates: start: 202012

REACTIONS (4)
  - SARS-CoV-2 test positive [Unknown]
  - COVID-19 [Unknown]
  - Pyrexia [Unknown]
  - Immune system disorder [Unknown]

NARRATIVE: CASE EVENT DATE: 20220131
